FAERS Safety Report 14591511 (Version 1)
Quarter: 2018Q1

REPORT INFORMATION
  Report Type: Spontaneous
  Country: US (occurrence: US)
  Receive Date: 20180302
  Receipt Date: 20180302
  Transmission Date: 20180509
  Serious: No
  Sender: FDA-Public Use
  Company Number: US-JNJFOC-20180219508

PATIENT
  Age: 37 Year
  Sex: Male
  Weight: 88.45 kg

DRUGS (1)
  1. SUDAFED NASAL DECONGESTANT MAXIMUM STRENGTH [Suspect]
     Active Substance: PSEUDOEPHEDRINE HYDROCHLORIDE
     Indication: NASAL CONGESTION
     Dosage: 1 TABLET EVERY 4 HOURS FOR ABOUT A WEEK.
     Route: 048
     Dates: end: 20180212

REACTIONS (2)
  - Drug ineffective [Unknown]
  - Product quality issue [Unknown]
